FAERS Safety Report 9109683 (Version 1)
Quarter: 2013Q1

REPORT INFORMATION
  Report Type: Spontaneous
  Country: US (occurrence: US)
  Receive Date: 20130222
  Receipt Date: 20130222
  Transmission Date: 20140127
  Serious: No
  Sender: FDA-Public Use
  Company Number: US-TEVA-336075USA

PATIENT
  Age: 49 Year
  Sex: Male

DRUGS (5)
  1. FLUOROURACIL [Suspect]
     Dates: start: 201203
  2. OXALIPLATIN [Suspect]
     Indication: PANCREATIC CARCINOMA METASTATIC
     Route: 041
     Dates: start: 20120412, end: 20120412
  3. FOLINIC ACID [Suspect]
     Dates: start: 201203
  4. LAXATIVES [Concomitant]
  5. DOCUSATE SODIUM [Concomitant]

REACTIONS (4)
  - Decreased appetite [Unknown]
  - Fatigue [Unknown]
  - Diarrhoea [Unknown]
  - Nausea [Unknown]
